FAERS Safety Report 13864647 (Version 1)
Quarter: 2017Q3

REPORT INFORMATION
  Report Type: Spontaneous
  Country: US (occurrence: US)
  Receive Date: 20170813
  Receipt Date: 20170813
  Transmission Date: 20171127
  Serious: Yes (Other)
  Sender: FDA-Public Use
  Company Number: None

PATIENT
  Age: 60 Year
  Sex: Female

DRUGS (6)
  1. SPIRIVA [Concomitant]
     Active Substance: TIOTROPIUM BROMIDE MONOHYDRATE
  2. PLAVIX [Concomitant]
     Active Substance: CLOPIDOGREL BISULFATE
  3. SYNTHROID [Concomitant]
     Active Substance: LEVOTHYROXINE SODIUM
  4. DIAZEPAM. [Concomitant]
     Active Substance: DIAZEPAM
  5. METOPROLOL. [Concomitant]
     Active Substance: METOPROLOL
  6. URSODIOL. [Suspect]
     Active Substance: URSODIOL
     Route: 048
     Dates: start: 20170801, end: 20170813

REACTIONS (4)
  - Throat tightness [None]
  - Altered visual depth perception [None]
  - Vision blurred [None]
  - Cognitive disorder [None]

NARRATIVE: CASE EVENT DATE: 20170813
